FAERS Safety Report 14635000 (Version 1)
Quarter: 2018Q1

REPORT INFORMATION
  Report Type: Spontaneous
  Country: CN (occurrence: CN)
  Receive Date: 20180314
  Receipt Date: 20180314
  Transmission Date: 20180509
  Serious: Yes (Hospitalization)
  Sender: FDA-Public Use
  Company Number: CN-FRESENIUS KABI-FK201802786

PATIENT
  Age: 72 Year
  Sex: Male
  Weight: 60 kg

DRUGS (1)
  1. VOLUVEN [Suspect]
     Active Substance: HYDROXYETHYL STARCH 130/0.4
     Indication: VOLUME BLOOD
     Route: 042
     Dates: start: 20171126, end: 20171126

REACTIONS (2)
  - Anaphylactoid reaction [Recovering/Resolving]
  - Cyanosis [Recovered/Resolved]

NARRATIVE: CASE EVENT DATE: 20171126
